FAERS Safety Report 9532909 (Version 2)
Quarter: 2013Q2

REPORT INFORMATION
  Report Type: Spontaneous
  Country: US (occurrence: None)
  Receive Date: 20130418
  Receipt Date: 20130606
  Transmission Date: 20140414
  Serious: Yes (Other)
  Sender: FDA-Public Use
  Company Number: 2013PROUSA02502

PATIENT
  Age: 64 Year
  Sex: Male
  Weight: 94.3 kg

DRUGS (9)
  1. PROVENGE [Suspect]
     Indication: PROSTATE CANCER METASTATIC
     Route: 042
     Dates: start: 20121217, end: 20121217
  2. BICALUTAMIDE (BICALUTAMIDE) [Concomitant]
  3. MEGESTROL (MEGESTROL) [Concomitant]
  4. CALCIUM (CALCIUM GLUCONATE) [Concomitant]
  5. MOBIC (MELOXICAM) [Concomitant]
  6. SEROQUEL (QUETIAPINE FUMARATE) [Concomitant]
  7. WELLBUTRIN X (BUPROPION HYDROCHLORIDE) [Concomitant]
  8. ATIVAN (LORAZEPAM) [Concomitant]
  9. CELEXA (CITALOPRAM HYDROBROMIDE) [Concomitant]

REACTIONS (1)
  - Culture positive [None]
